FAERS Safety Report 15999330 (Version 4)
Quarter: 2019Q2

REPORT INFORMATION
  Report Type: Spontaneous
  Country: US (occurrence: US)
  Receive Date: 20190225
  Receipt Date: 20190416
  Transmission Date: 20190711
  Serious: No
  Sender: FDA-Public Use
  Company Number: US-PFIZER INC-2019071292

PATIENT
  Age: 60 Year
  Sex: Female

DRUGS (4)
  1. CELEBREX [Suspect]
     Active Substance: CELECOXIB
     Indication: CYSTITIS INTERSTITIAL
  2. CELEBREX [Suspect]
     Active Substance: CELECOXIB
     Indication: FIBROMYALGIA
     Dosage: 200 MG, 1X/DAY
     Dates: start: 2001
  3. CELEBREX [Suspect]
     Active Substance: CELECOXIB
     Indication: MIGRAINE
     Dosage: 100 MG, UNK
  4. CELEBREX [Suspect]
     Active Substance: CELECOXIB
     Indication: BLADDER PAIN

REACTIONS (5)
  - Product use in unapproved indication [Unknown]
  - Musculoskeletal discomfort [Unknown]
  - Migraine [Not Recovered/Not Resolved]
  - Headache [Unknown]
  - Product storage error [Unknown]
